FAERS Safety Report 14601649 (Version 1)
Quarter: 2018Q1

REPORT INFORMATION
  Report Type: Spontaneous
  Country: ES (occurrence: ES)
  Receive Date: 20180306
  Receipt Date: 20180306
  Transmission Date: 20180509
  Serious: Yes (Other)
  Sender: FDA-Public Use
  Company Number: ES-009507513-1802ESP014048

PATIENT
  Age: 1 Year
  Sex: Male
  Weight: 9 kg

DRUGS (1)
  1. SINGULAIR [Suspect]
     Active Substance: MONTELUKAST SODIUM
     Indication: BRONCHOSPASM
     Dosage: 4 MG, QD (1 SACHET A DAY)
     Route: 048
     Dates: start: 20170717, end: 20171109

REACTIONS (1)
  - Sleep terror [Recovered/Resolved]

NARRATIVE: CASE EVENT DATE: 20171101
